FAERS Safety Report 9668647 (Version 1)
Quarter: 2013Q4

REPORT INFORMATION
  Report Type: Spontaneous
  Country: CA (occurrence: CA)
  Receive Date: 20131105
  Receipt Date: 20131105
  Transmission Date: 20140711
  Serious: Yes (Hospitalization)
  Sender: FDA-Public Use
  Company Number: CA-AMGEN-CANSP2013077053

PATIENT
  Age: 41 Year
  Sex: Female

DRUGS (1)
  1. NEUPOGEN [Suspect]
     Indication: BREAST CANCER
     Dosage: 1ML/300MCG
     Route: 065
     Dates: start: 20100413, end: 20100418

REACTIONS (1)
  - Bone pain [Recovered/Resolved]
